FAERS Safety Report 26116919 (Version 1)
Quarter: 2025Q4

REPORT INFORMATION
  Report Type: Spontaneous
  Country: EU (occurrence: EU)
  Receive Date: 20251203
  Receipt Date: 20251203
  Transmission Date: 20260118
  Serious: Yes (Other)
  Sender: HIKMA
  Company Number: None

PATIENT
  Age: 69 Year
  Sex: Male
  Weight: 87 kg

DRUGS (4)
  1. DEXAMETHASONE [Suspect]
     Active Substance: DEXAMETHASONE
     Indication: Prophylaxis
     Dosage: 8 MILLIGRAM, QD
     Route: 048
     Dates: start: 20250904, end: 20250913
  2. FLUOROURACIL [Suspect]
     Active Substance: FLUOROURACIL
     Indication: Adenocarcinoma gastric
     Dosage: UNK
     Route: 042
     Dates: start: 20250903, end: 20250905
  3. IRINOTECAN [Suspect]
     Active Substance: IRINOTECAN
     Indication: Adenocarcinoma gastric
     Dosage: UNK
     Route: 042
     Dates: start: 20250903, end: 20250905
  4. LEUCOVORIN [Concomitant]
     Active Substance: LEUCOVORIN\LEUCOVORIN CALCIUM
     Indication: Adenocarcinoma gastric
     Dosage: UNK
     Route: 042
     Dates: start: 20250903, end: 20250905

REACTIONS (2)
  - Herpes zoster oticus [Not Recovered/Not Resolved]
  - Perichondritis [Not Recovered/Not Resolved]

NARRATIVE: CASE EVENT DATE: 20250911
